FAERS Safety Report 23330613 (Version 2)
Quarter: 2024Q1

REPORT INFORMATION
  Report Type: Spontaneous
  Country: JP (occurrence: JP)
  Receive Date: 20231222
  Receipt Date: 20240111
  Transmission Date: 20240410
  Serious: Yes (Other)
  Sender: FDA-Public Use
  Company Number: JP-Accord-396860

PATIENT
  Age: 74 Year
  Sex: Male
  Weight: 56 kg

DRUGS (5)
  1. OXALIPLATIN [Suspect]
     Active Substance: OXALIPLATIN
     Indication: Metastases to peritoneum
     Dosage: 4 COURSES
  2. PACLITAXEL [Suspect]
     Active Substance: PACLITAXEL
     Indication: Gastric cancer
     Dosage: ON DAYS 1 AND 8
     Route: 033
  3. TS-1 [Suspect]
     Active Substance: GIMERACIL\OTERACIL POTASSIUM\TEGAFUR
     Indication: Metastases to peritoneum
     Dosage: 4 COURSES?S-1 + PACLITAXEL 100 MG/BODY) ORALLY FOR 14 DAYS
     Route: 048
  4. TS-1 [Suspect]
     Active Substance: GIMERACIL\OTERACIL POTASSIUM\TEGAFUR
     Indication: Metastases to peritoneum
     Dosage: 4 COURSES, SOX THERAPY (S-1: 100 MG/DAY (DAY 1-14 ADMINISTRATION, DAY 15-21 SUSPENSION)).
     Route: 048
  5. PACLITAXEL [Suspect]
     Active Substance: PACLITAXEL
     Indication: Gastric cancer
     Dosage: ON DAYS 1 AND 8
     Route: 042

REACTIONS (3)
  - Drug ineffective [Unknown]
  - Ascites [Unknown]
  - Leukopenia [Unknown]
